FAERS Safety Report 4482396-8 (Version None)
Quarter: 2004Q4

REPORT INFORMATION
  Report Type: 
  Country: None (occurrence: None)
  Receive Date: 20041022
  Receipt Date: 20040402
  Transmission Date: 20050328
  Serious: Yes (Other)
  Sender: FDA-Public Use
  Company Number: US-BRISTOL-MYERS SQUIBB COMPANY-12550000

PATIENT
  Age: 32 Year
  Sex: Male
  Weight: 104 kg

DRUGS (1)
  1. BUSPAR [Suspect]
     Indication: ANXIETY
     Route: 048
     Dates: start: 19930101

REACTIONS (1)
  - HYPERSENSITIVITY [None]
